FAERS Safety Report 13895940 (Version 3)
Quarter: 2019Q4

REPORT INFORMATION
  Report Type: Spontaneous
  Country: IT (occurrence: IT)
  Receive Date: 20170823
  Receipt Date: 20191129
  Transmission Date: 20200122
  Serious: Yes (Hospitalization)
  Sender: FDA-Public Use
  Company Number: IT-AUROBINDO-AUR-APL-2017-39109

PATIENT
  Age: 53 Year
  Sex: Female

DRUGS (6)
  1. RISPERIDONE. [Suspect]
     Active Substance: RISPERIDONE
     Indication: SUICIDE ATTEMPT
     Dosage: 1 DOSAGE FORM, IN TOTAL
     Route: 048
     Dates: start: 20170408, end: 20170408
  2. ZOLOFT [Suspect]
     Active Substance: SERTRALINE HYDROCHLORIDE
     Indication: SUICIDE ATTEMPT
     Dosage: 1 DOSAGE FORM, IN TOTAL
     Route: 048
     Dates: start: 20170408, end: 20170408
  3. MIRTAZAPINE. [Suspect]
     Active Substance: MIRTAZAPINE
     Indication: SUICIDE ATTEMPT
     Dosage: 1 DOSAGE FORM. IN TOTAL
     Route: 048
     Dates: start: 20170408, end: 20170408
  4. LYRICA [Suspect]
     Active Substance: PREGABALIN
     Indication: SUICIDE ATTEMPT
     Dosage: 1 DOSAGE FORM, IN TOTAL
     Route: 048
     Dates: start: 20170408, end: 20170408
  5. TEGRETOL [Suspect]
     Active Substance: CARBAMAZEPINE
     Indication: SUICIDE ATTEMPT
     Dosage: 1 DOSAGE FORM, IN TOTAL
     Route: 048
     Dates: start: 20170408, end: 20170408
  6. EN [Suspect]
     Active Substance: DELORAZEPAM
     Indication: SUICIDE ATTEMPT
     Dosage: 1 DOSAGE FORM, IN TOTAL
     Route: 048
     Dates: start: 20170408, end: 20170408

REACTIONS (5)
  - Toxicity to various agents [Unknown]
  - Coma [Unknown]
  - Pharyngeal erythema [Unknown]
  - Intentional overdose [Unknown]
  - Suicide attempt [Unknown]

NARRATIVE: CASE EVENT DATE: 20170408
